FAERS Safety Report 7208887-4 (Version None)
Quarter: 2011Q1

REPORT INFORMATION
  Report Type: 
  Country: None (occurrence: None)
  Receive Date: 20110104
  Receipt Date: 20101223
  Transmission Date: 20110831
  Serious: Yes (Hospitalization)
  Sender: FDA-Public Use
  Company Number: PHHY2010US87736

PATIENT
  Sex: Female
  Weight: 57 kg

DRUGS (5)
  1. OXYCONTIN [Concomitant]
     Indication: PAIN
     Dosage: 480 MG, 8 HOURLY
     Route: 048
  2. PROTONIX [Concomitant]
     Dosage: 40 MG, DAILY
  3. EXJADE [Suspect]
     Indication: SICKLE CELL ANAEMIA
     Dosage: 1000 MG, QD
     Route: 048
     Dates: start: 20060801, end: 20100701
  4. EXJADE [Suspect]
     Dosage: 1000 MG, QD
     Route: 048
  5. DILAUDID [Concomitant]
     Dosage: 8 MG
     Route: 048

REACTIONS (1)
  - PNEUMONIA [None]
